FAERS Safety Report 14502874 (Version 1)
Quarter: 2018Q1

REPORT INFORMATION
  Report Type: Spontaneous
  Country: US (occurrence: US)
  Receive Date: 20180208
  Receipt Date: 20180208
  Transmission Date: 20180509
  Serious: Yes (Hospitalization)
  Sender: FDA-Public Use
  Company Number: US-TEVA-2018-US-855232

PATIENT
  Sex: Female

DRUGS (2)
  1. QVAR [Suspect]
     Active Substance: BECLOMETHASONE DIPROPIONATE
     Route: 065
  2. VENTOLIN HFA [Suspect]
     Active Substance: ALBUTEROL SULFATE
     Route: 065

REACTIONS (7)
  - Dyspnoea [Unknown]
  - Lethargy [Unknown]
  - Fatigue [Unknown]
  - Wrong technique in device usage process [Unknown]
  - Cough [Unknown]
  - Headache [Unknown]
  - Viral infection [Unknown]

NARRATIVE: CASE EVENT DATE: 20171227
